FAERS Safety Report 24883585 (Version 1)
Quarter: 2025Q1

REPORT INFORMATION
  Report Type: Spontaneous
  Country: US (occurrence: US)
  Receive Date: 20250124
  Receipt Date: 20250124
  Transmission Date: 20250409
  Serious: Yes (Other)
  Sender: GE HEALTHCARE
  Company Number: US-GE HEALTHCARE-2025CSU000697

PATIENT
  Age: 54 Year
  Sex: Female
  Weight: 48 kg

DRUGS (3)
  1. OMNIPAQUE [Suspect]
     Active Substance: IOHEXOL
     Indication: Computerised tomogram
     Route: 065
     Dates: start: 20241213, end: 20241213
  2. MOMETASONE [Concomitant]
     Active Substance: MOMETASONE
     Indication: Nasal irrigation
     Dosage: 2 MG, QD
     Route: 065
  3. Vital Proteins Collagen Peptides [Concomitant]
     Route: 065

REACTIONS (17)
  - Micturition urgency [Unknown]
  - Contusion [Unknown]
  - Gastrooesophageal reflux disease [Unknown]
  - Urinary incontinence [Unknown]
  - Gastrointestinal disorder [Unknown]
  - Vitreous floaters [Not Recovered/Not Resolved]
  - Face oedema [Recovered/Resolved]
  - Erythema [Unknown]
  - Vision blurred [Unknown]
  - Rash [Recovering/Resolving]
  - Pruritus [Unknown]
  - Hot flush [Unknown]
  - Blister [Unknown]
  - Headache [Unknown]
  - Pyrexia [Unknown]
  - Pain of skin [Unknown]
  - Dermatitis [Unknown]

NARRATIVE: CASE EVENT DATE: 20241213
